FAERS Safety Report 14851773 (Version 1)
Quarter: 2018Q2

REPORT INFORMATION
  Report Type: Spontaneous
  Country: US (occurrence: US)
  Receive Date: 20180420
  Receipt Date: 20180420
  Transmission Date: 20180711
  Serious: Yes (Hospitalization)
  Sender: FDA-Public Use
  Company Number: None

PATIENT
  Age: 59 Year
  Sex: Male

DRUGS (2)
  1. REMICADE [Suspect]
     Active Substance: INFLIXIMAB
     Indication: COLITIS ULCERATIVE
     Dosage: OTHER FREQUENCY:EVERY 7 WEEKS;?
     Route: 042
  2. PROBIOTIC CAPSULES [Concomitant]
     Active Substance: PROBIOTICS NOS
     Dates: start: 20161215

REACTIONS (1)
  - Hospitalisation [None]
